FAERS Safety Report 5113787-X (Version None)
Quarter: 2006Q3

REPORT INFORMATION
  Report Type: 
  Country: None (occurrence: None)
  Receive Date: 20060921
  Receipt Date: 20060921
  Transmission Date: 20061208
  Serious: Yes (Other)
  Sender: FDA-Public Use
  Company Number: None

PATIENT
  Age: 36 Year
  Sex: Female
  Weight: 56.6996 kg

DRUGS (2)
  1. PAROXETINE [Suspect]
     Indication: DEPRESSION
     Dosage: 40 MG    DAILY   PO
     Route: 048
     Dates: start: 20050513, end: 20060303
  2. PAROXETINE [Suspect]
     Indication: DEPRESSION
     Dosage: 40 MG    DAILY   PO
     Route: 048
     Dates: start: 20060601

REACTIONS (6)
  - DEPRESSION [None]
  - FEELING ABNORMAL [None]
  - IMPAIRED WORK ABILITY [None]
  - PHARMACEUTICAL PRODUCT COMPLAINT [None]
  - STRESS AT WORK [None]
  - UNEMPLOYMENT [None]
